FAERS Safety Report 5325846-7 (Version None)
Quarter: 2007Q2

REPORT INFORMATION
  Report Type: 
  Country: None (occurrence: None)
  Receive Date: 20070510
  Receipt Date: 20060327
  Transmission Date: 20071010
  Serious: Yes (Other)
  Sender: FDA-Public Use
  Company Number: 2006PO0040FU1

PATIENT

DRUGS (1)
  1. MEFENAMIC ACID [Suspect]
     Dosage: PER RECTUM
     Route: 054

REACTIONS (1)
  - CONVULSION [None]
